FAERS Safety Report 20628106 (Version 2)
Quarter: 2022Q2

REPORT INFORMATION
  Report Type: Report from Study
  Country: US (occurrence: US)
  Receive Date: 20220323
  Receipt Date: 20220414
  Transmission Date: 20220720
  Serious: Yes (Other)
  Sender: FDA-Public Use
  Company Number: US-ABBVIE-22K-163-4326199-00

PATIENT
  Sex: Female

DRUGS (1)
  1. VENCLEXTA [Suspect]
     Active Substance: VENETOCLAX
     Indication: Extranodal marginal zone B-cell lymphoma (BALT type)
     Route: 048
     Dates: start: 201811

REACTIONS (2)
  - Dermal cyst [Unknown]
  - Micrographic skin surgery [Unknown]
